FAERS Safety Report 10058269 (Version 2)
Quarter: 2014Q2

REPORT INFORMATION
  Report Type: Spontaneous
  Country: US (occurrence: US)
  Receive Date: 20140404
  Receipt Date: 20140527
  Transmission Date: 20141212
  Serious: Yes (Hospitalization, Other)
  Sender: FDA-Public Use
  Company Number: US-JNJFOC-20140317018

PATIENT
  Age: 50 Year
  Sex: Male
  Weight: 88 kg

DRUGS (4)
  1. PANCREAZE [Suspect]
     Indication: PANCREATIC DISORDER
     Dosage: 8 CAPSULES WITH MEALS AND 6 CAPSULES WITH SNACKS
     Route: 048
     Dates: start: 201306
  2. PANCREAZE [Suspect]
     Indication: PANCREATIC DISORDER
     Dosage: 8 CAPSULES WITH MEALS AND 6 CAPSULES WITH SNACKS
     Route: 048
  3. PANCREAZE [Suspect]
     Indication: CYSTIC FIBROSIS
     Dosage: 8 CAPSULES WITH MEALS AND 6 CAPSULES WITH SNACKS
     Route: 048
     Dates: start: 201306
  4. PANCREAZE [Suspect]
     Indication: CYSTIC FIBROSIS
     Dosage: 8 CAPSULES WITH MEALS AND 6 CAPSULES WITH SNACKS
     Route: 048

REACTIONS (5)
  - Lung transplant [Unknown]
  - Superior vena cava occlusion [Unknown]
  - Mechanical ventilation [Not Recovered/Not Resolved]
  - Wrong technique in drug usage process [Not Recovered/Not Resolved]
  - Gastrointestinal tube insertion [Not Recovered/Not Resolved]
